FAERS Safety Report 12521795 (Version 1)
Quarter: 2016Q3

REPORT INFORMATION
  Report Type: Spontaneous
  Country: US (occurrence: US)
  Receive Date: 20160701
  Receipt Date: 20160701
  Transmission Date: 20161109
  Serious: No
  Sender: FDA-Public Use
  Company Number: US-MAYNE PHARMA-2015MYN000003

PATIENT

DRUGS (1)
  1. DORYX [Suspect]
     Active Substance: DOXYCYCLINE HYCLATE

REACTIONS (1)
  - Blepharospasm [Recovered/Resolved]
